FAERS Safety Report 6037959-5 (Version None)
Quarter: 2009Q1

REPORT INFORMATION
  Report Type: 
  Country: None (occurrence: None)
  Receive Date: 20090115
  Receipt Date: 20090107
  Transmission Date: 20090719
  Serious: Yes (Hospitalization, Other)
  Sender: FDA-Public Use
  Company Number: US-AMGEN-QUU325468

PATIENT
  Sex: Female
  Weight: 75.8 kg

DRUGS (17)
  1. ENBREL [Suspect]
     Indication: RHEUMATOID ARTHRITIS
     Route: 058
     Dates: start: 20040616
  2. METHOTREXATE [Concomitant]
     Route: 048
  3. FOSAMAX [Concomitant]
  4. NORVASC [Concomitant]
  5. CALCIUM WITH VITAMIN D [Concomitant]
  6. CELEBREX [Concomitant]
  7. CYCLOBENZAPRINE HCL [Concomitant]
  8. MULTI-VITAMINS [Concomitant]
  9. NEXIUM [Concomitant]
     Route: 048
  10. FOLIC ACID [Concomitant]
  11. HYDROCODONE BITARTRATE + ACETAMINOPHEN [Concomitant]
  12. SYNTHROID [Concomitant]
  13. PREDNISONE [Concomitant]
  14. QUININE SULFATE [Concomitant]
  15. TRAZODONE HCL [Concomitant]
  16. FLECTOR [Concomitant]
     Route: 061
     Dates: end: 20080829
  17. PRILOSEC [Concomitant]

REACTIONS (14)
  - AORTIC ANEURYSM [None]
  - ARTHRALGIA [None]
  - BRONCHITIS [None]
  - CARDIAC FAILURE CONGESTIVE [None]
  - CEREBROVASCULAR ACCIDENT [None]
  - DYSLIPIDAEMIA [None]
  - FATIGUE [None]
  - HYPERTENSION [None]
  - INTERSTITIAL LUNG DISEASE [None]
  - JOINT STIFFNESS [None]
  - PNEUMONIA [None]
  - PRODUCTIVE COUGH [None]
  - PULMONARY FIBROSIS [None]
  - RHEUMATOID ARTHRITIS [None]
